FAERS Safety Report 9017629 (Version 1)
Quarter: 2013Q1

REPORT INFORMATION
  Report Type: Spontaneous
  Country: FR (occurrence: FR)
  Receive Date: 20130117
  Receipt Date: 20130117
  Transmission Date: 20140127
  Serious: Yes (Death, Hospitalization)
  Sender: FDA-Public Use
  Company Number: FR-PFIZER INC-2013017134

PATIENT
  Age: 88 Year
  Sex: Male

DRUGS (2)
  1. TAHOR [Suspect]
     Dosage: 40 MG, 1X/DAY
     Route: 048
     Dates: start: 20120821, end: 20120824
  2. CEFTRIAXONE [Suspect]
     Dosage: UNK
     Route: 042
     Dates: start: 20120808, end: 20120817

REACTIONS (3)
  - Neurological decompensation [Fatal]
  - Cholestasis [Recovering/Resolving]
  - Aspartate aminotransferase increased [Recovering/Resolving]
